FAERS Safety Report 8485431-5 (Version None)
Quarter: 2012Q3

REPORT INFORMATION
  Report Type: 
  Country: None (occurrence: None)
  Receive Date: 20120703
  Receipt Date: 20120621
  Transmission Date: 20120928
  Serious: Yes (Other)
  Sender: FDA-Public Use
  Company Number: JP-VERTEX PHARMACEUTICALS INC.-AE-2012-009395

PATIENT
  Age: 60 Year
  Sex: Female

DRUGS (3)
  1. TELAVIC (TELAPREVIR) [Suspect]
     Indication: HEPATITIS C
     Route: 048
     Dates: start: 20120619, end: 20120620
  2. REBETOL [Concomitant]
     Indication: HEPATITIS C
     Route: 048
     Dates: start: 20120619, end: 20120620
  3. PEG-INTRON [Concomitant]
     Indication: HEPATITIS C
     Route: 058
     Dates: start: 20120619, end: 20120620

REACTIONS (3)
  - BLOOD CREATININE ABNORMAL [None]
  - BLOOD BILIRUBIN ABNORMAL [None]
  - NAUSEA [None]
